FAERS Safety Report 5189746-8 (Version None)
Quarter: 2006Q4

REPORT INFORMATION
  Report Type: 
  Country: None (occurrence: None)
  Receive Date: 20061215
  Receipt Date: 20061204
  Transmission Date: 20070319
  Serious: Yes (Hospitalization)
  Sender: FDA-Public Use
  Company Number: T200601405

PATIENT
  Sex: Female

DRUGS (2)
  1. OPTIJECT                            (IOVERSOL) [Suspect]
     Indication: UROGRAM
     Dosage: INTRAVENOUS
     Route: 042
  2. CORTISONE ACETATE [Concomitant]

REACTIONS (1)
  - ANAPHYLACTIC SHOCK [None]
